FAERS Safety Report 7855006-7 (Version None)
Quarter: 2011Q4

REPORT INFORMATION
  Report Type: 
  Country: None (occurrence: None)
  Receive Date: 20111026
  Receipt Date: 20111019
  Transmission Date: 20120403
  Serious: Yes (Disabling, Other)
  Sender: FDA-Public Use
  Company Number: US-AMGEN-USASP2011054083

PATIENT
  Age: 45 Year
  Sex: Female

DRUGS (1)
  1. ENBREL [Suspect]
     Indication: ANKYLOSING SPONDYLITIS
     Dosage: 50 MG, QWK
     Dates: start: 20110926

REACTIONS (6)
  - BONE PAIN [None]
  - SPINAL COLUMN INJURY [None]
  - FLUSHING [None]
  - NERVE COMPRESSION [None]
  - HYPOAESTHESIA [None]
  - INJECTION SITE PAIN [None]
